FAERS Safety Report 17366476 (Version 1)
Quarter: 2020Q1

REPORT INFORMATION
  Report Type: Spontaneous
  Country: UZ (occurrence: UZ)
  Receive Date: 20200204
  Receipt Date: 20200204
  Transmission Date: 20200409
  Serious: Yes (Death, Hospitalization, Other)
  Sender: FDA-Public Use
  Company Number: UZ-JNJFOC-20200139558

PATIENT
  Sex: Male
  Weight: 44 kg

DRUGS (22)
  1. BEDAQUILINE [Suspect]
     Active Substance: BEDAQUILINE
     Indication: TUBERCULOSIS
     Route: 048
     Dates: end: 2018
  2. CLOFAZIMINE [Suspect]
     Active Substance: CLOFAZIMINE
     Indication: TUBERCULOSIS
     Dates: end: 2018
  3. CAPREOMYCIN [Suspect]
     Active Substance: CAPREOMYCIN
     Indication: TUBERCULOSIS
     Dates: end: 2018
  4. LINEZOLID. [Suspect]
     Active Substance: LINEZOLID
     Dates: start: 20190219
  5. VITAMIN B6 [Suspect]
     Active Substance: PYRIDOXINE HYDROCHLORIDE
     Dates: start: 20190219
  6. CYCLOSERINE. [Suspect]
     Active Substance: CYCLOSERINE
     Indication: TUBERCULOSIS
     Dates: end: 2018
  7. DIGOXIN. [Concomitant]
     Active Substance: DIGOXIN
     Route: 042
  8. CLOFAZIMINE [Suspect]
     Active Substance: CLOFAZIMINE
     Dates: start: 20190219
  9. LINEZOLID. [Suspect]
     Active Substance: LINEZOLID
     Indication: TUBERCULOSIS
     Dates: end: 2018
  10. DEXAMETHASONE. [Concomitant]
     Active Substance: DEXAMETHASONE
     Route: 042
  11. KCL [Concomitant]
     Active Substance: POTASSIUM CHLORIDE
     Route: 042
  12. NORMAL SALINE [Concomitant]
     Active Substance: SODIUM CHLORIDE
     Route: 065
  13. BEDAQUILINE [Suspect]
     Active Substance: BEDAQUILINE
     Route: 048
     Dates: start: 20190219
  14. PYRAZINAMIDE. [Suspect]
     Active Substance: PYRAZINAMIDE
     Indication: TUBERCULOSIS
     Dates: end: 2018
  15. THIOTRIAZOLINE [Concomitant]
  16. PYRAZINAMIDE. [Suspect]
     Active Substance: PYRAZINAMIDE
     Dates: start: 20190219
  17. MOXIFLOXACIN. [Suspect]
     Active Substance: MOXIFLOXACIN
     Dates: start: 20190219
  18. VITAMIN B6 [Suspect]
     Active Substance: PYRIDOXINE HYDROCHLORIDE
     Indication: TUBERCULOSIS
     Dates: end: 2018
  19. CAPREOMYCIN [Suspect]
     Active Substance: CAPREOMYCIN
     Dates: start: 20190219
  20. CYCLOSERINE. [Suspect]
     Active Substance: CYCLOSERINE
     Dates: start: 20190219
  21. MOXIFLOXACIN. [Suspect]
     Active Substance: MOXIFLOXACIN
     Indication: TUBERCULOSIS
     Dates: end: 2018
  22. FUROSEMIDE. [Concomitant]
     Active Substance: FUROSEMIDE
     Route: 030

REACTIONS (4)
  - Treatment noncompliance [Unknown]
  - Blood potassium decreased [Unknown]
  - Hypercreatinaemia [Unknown]
  - Dyspnoea [Fatal]
